FAERS Safety Report 5824653-6 (Version None)
Quarter: 2008Q3

REPORT INFORMATION
  Report Type: 
  Country: None (occurrence: None)
  Receive Date: 20080721
  Receipt Date: 20080704
  Transmission Date: 20090109
  Serious: Yes (Other)
  Sender: FDA-Public Use
  Company Number: 2008EU001352

PATIENT
  Age: 46 Year
  Sex: Male

DRUGS (15)
  1. PROGRAF [Suspect]
     Indication: RENAL TRANSPLANT
     Dosage: 16 MG, ORAL
     Route: 048
     Dates: start: 20080513, end: 20080514
  2. CLOXACILLIN(CLOXACILLIN SODIUM) [Suspect]
     Dosage: 2 G, TOTAL DOSE, IV NOS
     Route: 042
     Dates: start: 20080513, end: 20080513
  3. CELLCEPT [Suspect]
     Indication: RENAL TRANSPLANT
     Dosage: 1 G, UID/QD, ORAL
     Route: 048
     Dates: start: 20080513
  4. FENTANYL CITRATE [Suspect]
     Indication: ANAESTHESIA
     Dosage: 200 MG, TOTAL DOSE, IV NOS
     Route: 042
     Dates: start: 20080513, end: 20080513
  5. NIMBEX [Suspect]
     Indication: ANAESTHESIA
     Dosage: 12 MG, TOTAL DOSE, IV NOS
     Route: 042
     Dates: start: 20080513, end: 20080513
  6. SUCCINILCOLINA(SUXAMETHONIUM CHLORIDE) [Suspect]
     Indication: ANAESTHESIA
     Dosage: 75 MG, TOTAL DOSE, IV NOS
     Route: 042
     Dates: start: 20080513, end: 20080513
  7. PROPOFOL [Suspect]
     Indication: ANAESTHESIA
     Dosage: 650 MG, TOTAL DOSE, IV NOS
     Route: 042
     Dates: start: 20080513, end: 20080513
  8. SIMULECT [Suspect]
     Indication: RENAL TRANSPLANT
     Dosage: TOTAL DOSE, IV NOS
     Route: 042
     Dates: start: 20080513, end: 20080513
  9. TIMOGLOBULINA(ANTITHYMOCYTE IMMUNOGLOBULIN (RABBIT)) [Suspect]
     Indication: RENAL TRANSPLANT
     Dosage: 120 MG, TOTAL DOSE, IV NOS
     Route: 042
     Dates: start: 20080513, end: 20080513
  10. PROGRAF [Concomitant]
  11. URBASON (METHYLPREDNISOLONE SODIUM SUCCINATE) [Concomitant]
  12. TOBRAMYCIN SULFATE [Concomitant]
  13. GOBEMICINA (AMPICILLIN SODIUM) [Concomitant]
  14. ZANTAC [Concomitant]
  15. SEGURIL (FUROSEMIDE SODIUM) [Concomitant]

REACTIONS (3)
  - IMMUNOSUPPRESSANT DRUG LEVEL INCREASED [None]
  - PANCREATITIS ACUTE [None]
  - SPLENOMEGALY [None]
